FAERS Safety Report 7974777-2 (Version None)
Quarter: 2011Q4

REPORT INFORMATION
  Report Type: 
  Country: None (occurrence: None)
  Receive Date: 20111213
  Receipt Date: 20111202
  Transmission Date: 20120403
  Serious: Yes (Hospitalization)
  Sender: FDA-Public Use
  Company Number: JP-AMGEN-JPNCT2011017268

PATIENT
  Age: 75 Year
  Sex: Male
  Weight: 53 kg

DRUGS (14)
  1. PANITUMUMAB [Suspect]
     Dosage: 6 MG/KG, Q2WK
     Route: 041
     Dates: start: 20110125, end: 20110210
  2. LANSOPRAZOLE [Concomitant]
     Dosage: UNK
     Route: 048
  3. EPINASTINE HYDROCHLORIDE [Concomitant]
     Dosage: UNK
     Route: 048
  4. TALION [Concomitant]
     Dosage: UNK
     Route: 048
  5. RINDERON-VG [Concomitant]
     Dosage: UNK
     Route: 062
  6. HIRUDOID [Concomitant]
     Dosage: UNK
     Route: 062
  7. LOCOID [Concomitant]
     Dosage: UNK
     Route: 062
  8. JUZENTAIHOTO [Concomitant]
     Route: 048
  9. SPIRIVA [Concomitant]
     Dosage: UNK
     Route: 048
  10. TERRA-CORTRIL [Concomitant]
     Dosage: UNK
     Route: 062
  11. ROHYPNOL [Concomitant]
     Dosage: UNK
     Route: 048
  12. PANITUMUMAB [Suspect]
     Indication: COLORECTAL CANCER
     Dosage: 6 MG/KG, Q2WK
     Route: 041
     Dates: start: 20100714, end: 20100924
  13. PANITUMUMAB [Suspect]
     Dosage: 6 MG/KG, Q2WK
     Route: 041
     Dates: start: 20101028, end: 20101224
  14. ANTEBATE [Concomitant]
     Dosage: UNK
     Route: 062

REACTIONS (9)
  - FATIGUE [None]
  - DERMATITIS [None]
  - DERMATITIS ACNEIFORM [None]
  - DRY SKIN [None]
  - ILEUS [None]
  - PYREXIA [None]
  - PRURITUS [None]
  - PNEUMONIA ASPIRATION [None]
  - ERYTHEMA [None]
